FAERS Safety Report 17763139 (Version 2)
Quarter: 2020Q2

REPORT INFORMATION
  Report Type: Report from Study
  Country: None (occurrence: US)
  Receive Date: 20200508
  Receipt Date: 20200514
  Transmission Date: 20200714
  Serious: Yes (Other)
  Sender: FDA-Public Use
  Company Number: US-ABBVIE-20K-163-3389548-00

PATIENT
  Age: 36 Year
  Sex: Female

DRUGS (1)
  1. ELAGOLIX [Suspect]
     Active Substance: ELAGOLIX
     Indication: UTERINE LEIOMYOMA
     Route: 048
     Dates: start: 201612

REACTIONS (6)
  - Dysmenorrhoea [Unknown]
  - Maternal exposure during pregnancy [Unknown]
  - Menorrhagia [Unknown]
  - Live birth [Unknown]
  - Hysterectomy [Recovered/Resolved]
  - Hypomenorrhoea [Unknown]

NARRATIVE: CASE EVENT DATE: 201807
